FAERS Safety Report 9734970 (Version 1)
Quarter: 2013Q4

REPORT INFORMATION
  Report Type: Report from Study
  Country: CZ (occurrence: CZ)
  Receive Date: 20131206
  Receipt Date: 20131206
  Transmission Date: 20140711
  Serious: Yes (Hospitalization)
  Sender: FDA-Public Use
  Company Number: CZ-UCBSA-104662

PATIENT
  Age: 64 Year
  Sex: Female
  Weight: 66 kg

DRUGS (4)
  1. CERTOLIZUMAB PEGOL [Suspect]
     Indication: ANKYLOSING SPONDYLITIS
     Dosage: NO OF DOSES RECIEVED: 43
     Route: 058
  2. THYROXIN [Concomitant]
     Indication: HYPOTHYROIDISM
     Route: 048
     Dates: start: 200408
  3. LOVASTATIN [Concomitant]
     Indication: DYSLIPIDAEMIA
     Route: 048
     Dates: start: 201007
  4. NIMESULIDE [Concomitant]
     Indication: ANKYLOSING SPONDYLITIS
     Route: 048
     Dates: start: 20100125

REACTIONS (1)
  - Breast cancer [Recovering/Resolving]
